FAERS Safety Report 6105309-1 (Version None)
Quarter: 2009Q1

REPORT INFORMATION
  Report Type: 
  Country: None (occurrence: None)
  Receive Date: 20090227
  Receipt Date: 20081211
  Transmission Date: 20090719
  Serious: Yes (Death)
  Sender: FDA-Public Use
  Company Number: RB-7435-2008

PATIENT
  Age: 52 Year
  Sex: Female

DRUGS (1)
  1. SUBOXONE [Suspect]
     Indication: BACK PAIN
     Dosage: 8 MG QD SUBLINGUAL
     Route: 060
     Dates: start: 20080901, end: 20080901

REACTIONS (1)
  - DRUG TOXICITY [None]
